FAERS Safety Report 4495182-X (Version None)
Quarter: 2004Q4

REPORT INFORMATION
  Report Type: 
  Country: None (occurrence: None)
  Receive Date: 20041104
  Receipt Date: 20041028
  Transmission Date: 20050328
  Serious: Yes (Other)
  Sender: FDA-Public Use
  Company Number: 003107

PATIENT
  Age: 54 Year
  Sex: Female

DRUGS (5)
  1. MEDROXYPROGESTERONE ACETATE [Suspect]
     Dates: start: 20010501, end: 20031101
  2. PREMARIN [Suspect]
     Dates: start: 19990401, end: 20030401
  3. PREMARIN [Suspect]
     Dates: start: 20010501, end: 20031101
  4. PROVERA [Suspect]
     Dates: start: 19990401, end: 20000401
  5. MEDROXYPROGESTERONE ACETATE [Suspect]
     Dates: start: 20000401, end: 20010501

REACTIONS (1)
  - BREAST CANCER FEMALE [None]
